FAERS Safety Report 5005407-X (Version None)
Quarter: 2006Q2

REPORT INFORMATION
  Report Type: 
  Country: None (occurrence: None)
  Receive Date: 20060518
  Receipt Date: 20060130
  Transmission Date: 20061013
  Serious: Yes (Hospitalization)
  Sender: FDA-Public Use
  Company Number: US-MERCK-0602USA00112

PATIENT
  Age: 61 Year
  Sex: Female
  Weight: 83 kg

DRUGS (36)
  1. SOMA [Concomitant]
     Indication: MUSCLE TIGHTNESS
     Route: 065
     Dates: start: 20020115, end: 20041221
  2. VIOXX [Suspect]
     Route: 048
     Dates: start: 20011231, end: 20040930
  3. VIOXX [Suspect]
     Route: 048
     Dates: start: 20011231, end: 20040930
  4. ALBUTEROL [Concomitant]
     Indication: ASTHMA
     Route: 055
  5. AMOXICILLIN [Concomitant]
     Indication: BACTERIAL INFECTION
     Route: 065
  6. BACTRIM [Concomitant]
     Indication: BACTERIAL INFECTION
     Route: 065
  7. CELEXA [Concomitant]
     Indication: DEPRESSION
     Route: 065
  8. CLIMARA [Concomitant]
     Indication: HORMONE REPLACEMENT THERAPY
     Route: 065
     Dates: start: 20020115, end: 20041221
  9. COZAAR [Concomitant]
     Indication: PROPHYLAXIS
     Route: 048
     Dates: start: 20020529, end: 20040104
  10. DOXYCYCLINE [Concomitant]
     Indication: BACTERIAL INFECTION
     Route: 065
  11. ECOTRIN [Concomitant]
     Indication: PAIN
     Route: 065
     Dates: start: 20020115, end: 20041221
  12. ASPIRIN [Concomitant]
     Indication: PAIN
     Route: 048
     Dates: start: 20011107
  13. ESTRADERM [Concomitant]
     Indication: OESTROGEN REPLACEMENT THERAPY
     Route: 065
  14. FAMVIR [Concomitant]
     Indication: VIRAL INFECTION
     Route: 065
  15. FLEXERIL [Concomitant]
     Indication: MUSCLE TIGHTNESS
     Route: 048
     Dates: start: 20020115, end: 20030513
  16. GLUCOPHAGE [Concomitant]
     Indication: DIABETES MELLITUS
     Route: 065
  17. HYCODAN [Concomitant]
     Indication: GASTROINTESTINAL DISORDER
     Route: 065
  18. LASIX [Concomitant]
     Indication: FLUID RETENTION
     Route: 048
     Dates: start: 20020115, end: 20050121
  19. PERCOCET [Concomitant]
     Indication: PAIN
     Route: 065
     Dates: start: 20020115, end: 20041221
  20. PRILOSEC [Concomitant]
     Indication: GASTRIC PH DECREASED
     Route: 048
  21. ROBITUSSIN [Concomitant]
     Indication: ASTHMA
     Route: 048
  22. CARISOPRODOL [Concomitant]
     Indication: MUSCLE TIGHTNESS
     Route: 065
     Dates: start: 20000626, end: 20041107
  23. TYLENOL W/ CODEINE [Concomitant]
     Indication: PAIN
     Route: 065
     Dates: start: 20020115, end: 20041221
  24. VICODIN [Concomitant]
     Indication: PAIN
     Route: 048
     Dates: start: 20020115, end: 20030613
  25. ACETAMINOPHEN AND HYDROCODONE BITARTRATE [Concomitant]
     Indication: PAIN
     Route: 065
     Dates: start: 20010604, end: 20041025
  26. XANAX [Concomitant]
     Indication: ANXIETY
     Route: 065
  27. FUROSEMIDE [Concomitant]
     Indication: FLUID RETENTION
     Route: 048
     Dates: start: 20000712, end: 20040420
  28. AMITRIPTYLINE HYDROCHLORIDE [Concomitant]
     Indication: DEPRESSION
     Route: 048
  29. CYCLOBENZAPRINE HYDROCHLORIDE [Concomitant]
     Indication: MUSCLE TIGHTNESS
     Route: 048
     Dates: start: 20000712, end: 20000914
  30. ENDOCET [Concomitant]
     Route: 065
     Dates: start: 20010521, end: 20040826
  31. ACETAMINOPHEN [Concomitant]
     Route: 048
     Dates: start: 20000712, end: 20041031
  32. REMERON [Concomitant]
     Route: 065
  33. PRINIVIL [Concomitant]
     Indication: HYPERTENSION
     Route: 048
     Dates: start: 20020515, end: 20020718
  34. PREVACID [Concomitant]
     Indication: HYPERCHLORHYDRIA
     Route: 065
  35. IBUPROFEN [Concomitant]
     Indication: PAIN
     Route: 048
     Dates: start: 20030108, end: 20030110
  36. NEURONTIN [Concomitant]
     Indication: PAIN
     Route: 048
     Dates: start: 20030611, end: 20040917

REACTIONS (29)
  - ACUTE MYOCARDIAL INFARCTION [None]
  - ARTERIOSCLEROSIS [None]
  - ASTHMA [None]
  - CHEST PAIN [None]
  - CHRONIC FATIGUE SYNDROME [None]
  - CHRONIC OBSTRUCTIVE PULMONARY DISEASE [None]
  - CONFUSIONAL STATE [None]
  - CONSTIPATION [None]
  - CORONARY ARTERY DISEASE [None]
  - CORONARY ARTERY OCCLUSION [None]
  - CORONARY ARTERY STENOSIS [None]
  - COUGH [None]
  - CRYING [None]
  - DIABETES MELLITUS [None]
  - DYSPNOEA [None]
  - FALL [None]
  - GASTROOESOPHAGEAL REFLUX DISEASE [None]
  - HEADACHE [None]
  - HYPERLIPIDAEMIA [None]
  - HYPERTENSION [None]
  - HYPOKINESIA [None]
  - MYALGIA [None]
  - MYOSITIS [None]
  - NAUSEA [None]
  - OEDEMA [None]
  - ORTHOSTATIC HYPOTENSION [None]
  - SLEEP DISORDER [None]
  - SPINAL CORD INJURY [None]
  - SWELLING [None]
